FAERS Safety Report 12890452 (Version 1)
Quarter: 2016Q4

REPORT INFORMATION
  Report Type: Spontaneous
  Country: US (occurrence: US)
  Receive Date: 20161027
  Receipt Date: 20161027
  Transmission Date: 20170207
  Serious: No
  Sender: FDA-Public Use
  Company Number: US-JAZZ-2016-US-015560

PATIENT
  Age: 41 Year
  Sex: Female

DRUGS (39)
  1. COMPAZINE [Concomitant]
     Active Substance: PROCHLORPERAZINE MALEATE
  2. WESTHROID [Concomitant]
     Active Substance: THYROGLOBULIN
  3. CALAN [Concomitant]
     Active Substance: VERAPAMIL HYDROCHLORIDE
  4. FOLIC ACID. [Concomitant]
     Active Substance: FOLIC ACID
  5. VITAMIN C [Concomitant]
     Active Substance: ASCORBIC ACID
  6. KLONOPIN [Concomitant]
     Active Substance: CLONAZEPAM
  7. VERAPAMIL [Concomitant]
     Active Substance: VERAPAMIL HYDROCHLORIDE
  8. PROPRANOLOL [Concomitant]
     Active Substance: PROPRANOLOL\PROPRANOLOL HYDROCHLORIDE
  9. TRAMADOL HCL [Concomitant]
     Active Substance: TRAMADOL HYDROCHLORIDE
  10. SPIRONOLACTONE. [Concomitant]
     Active Substance: SPIRONOLACTONE
  11. MELATONIN [Concomitant]
     Active Substance: MELATONIN
  12. METHOCARBAMOL. [Concomitant]
     Active Substance: METHOCARBAMOL
  13. BENADRYL [Concomitant]
     Active Substance: DIPHENHYDRAMINE HYDROCHLORIDE
  14. CHROMIUM PICOLINATE [Concomitant]
     Active Substance: CHROMIUM PICOLINATE
  15. MAGNESIUM [Concomitant]
     Active Substance: MAGNESIUM
  16. XANAX [Concomitant]
     Active Substance: ALPRAZOLAM
  17. XYREM [Suspect]
     Active Substance: SODIUM OXYBATE
     Dosage: 3 G, BID
     Route: 048
     Dates: start: 201204, end: 201209
  18. DEMEROL [Concomitant]
     Active Substance: MEPERIDINE HYDROCHLORIDE
  19. PROMETHAZINE [Concomitant]
     Active Substance: PROMETHAZINE\PROMETHAZINE HYDROCHLORIDE
  20. ALBUTEROL SULFATE HFA [Concomitant]
     Active Substance: ALBUTEROL SULFATE
  21. TRAZODONE HYDROCHLORIDE. [Concomitant]
     Active Substance: TRAZODONE HYDROCHLORIDE
  22. VITAMIN K [Concomitant]
     Active Substance: PHYTONADIONE
  23. NATURE-THROID [Concomitant]
     Active Substance: THYROID, PORCINE
  24. IODINE. [Concomitant]
     Active Substance: IODINE
  25. XYREM [Suspect]
     Active Substance: SODIUM OXYBATE
     Indication: NARCOLEPSY
     Dosage: 2.25 G, BID
     Route: 048
     Dates: start: 201203, end: 201204
  26. XYREM [Suspect]
     Active Substance: SODIUM OXYBATE
     Dosage: 4.5 G, BID
     Route: 048
     Dates: start: 201209, end: 20160814
  27. VITAMIN D3 [Concomitant]
     Active Substance: CHOLECALCIFEROL
  28. ZINC GLUCONATE [Concomitant]
     Active Substance: ZINC GLUCONATE
  29. MULTIVITAMIN [Concomitant]
     Active Substance: VITAMINS
  30. ZINC ACETATE [Concomitant]
     Active Substance: ZINC ACETATE
  31. ATIVAN [Concomitant]
     Active Substance: LORAZEPAM
  32. PERCOCET [Concomitant]
     Active Substance: ACETAMINOPHEN\OXYCODONE HYDROCHLORIDE
  33. TORADOL [Concomitant]
     Active Substance: KETOROLAC TROMETHAMINE
  34. PHENERGAN [Concomitant]
     Active Substance: PROMETHAZINE HYDROCHLORIDE
  35. CALCIUM CITRATE WITH VITAMIN D3 [Concomitant]
  36. MAGNESIUM CITRATE. [Concomitant]
     Active Substance: MAGNESIUM CITRATE
  37. MINIVELLE [Concomitant]
     Active Substance: ESTRADIOL
  38. SELENIUM [Concomitant]
     Active Substance: SELENIUM
  39. CALCARB [Concomitant]

REACTIONS (4)
  - Nausea [Recovered/Resolved]
  - Fatigue [Recovering/Resolving]
  - Migraine [Recovering/Resolving]
  - Blood pressure increased [Unknown]

NARRATIVE: CASE EVENT DATE: 201608
